FAERS Safety Report 8992869 (Version 1)
Quarter: 2013Q1

REPORT INFORMATION
  Report Type: Spontaneous
  Country: JP (occurrence: JP)
  Receive Date: 20130102
  Receipt Date: 20130102
  Transmission Date: 20140127
  Serious: Yes (Hospitalization)
  Sender: FDA-Public Use
  Company Number: JP-ELI_LILLY_AND_COMPANY-JP201209000303

PATIENT
  Age: 75 Year
  Sex: Female

DRUGS (3)
  1. FORTEO [Suspect]
     Route: 058
  2. FORTEO [Suspect]
     Route: 058
  3. FORTEO [Suspect]
     Dosage: UNK
     Route: 058

REACTIONS (4)
  - Spinal column stenosis [Unknown]
  - Alopecia [Unknown]
  - Myalgia [Unknown]
  - Muscle spasms [Unknown]
